FAERS Safety Report 8027187-6 (Version None)
Quarter: 2011Q4

REPORT INFORMATION
  Report Type: 
  Country: None (occurrence: None)
  Receive Date: 20111130
  Receipt Date: 20110919
  Transmission Date: 20120403
  Serious: Yes (Other)
  Sender: FDA-Public Use
  Company Number: US201107004989

PATIENT
  Age: 55 Year
  Sex: Female
  Weight: 69.4003 kg

DRUGS (12)
  1. SYMBICORT (BUDESONIDE, FORMOTEROL FUMARATE) ONGOING [Concomitant]
  2. BYETTA [Suspect]
     Indication: TYPE 2 DIABETES MELLITUS
     Dosage: 5 UG, BID, SUBCUTANEOUS 10 UG, EACH MORNING, SUBCUTANEOUS
     Route: 058
     Dates: start: 20110308, end: 20110501
  3. BYETTA [Suspect]
     Indication: TYPE 2 DIABETES MELLITUS
     Dosage: 5 UG, BID, SUBCUTANEOUS 10 UG, EACH MORNING, SUBCUTANEOUS
     Route: 058
     Dates: start: 20110501, end: 20110721
  4. RELAFEN (NABUMETONE) ONGOING [Concomitant]
  5. BONIVA (IBANDRONATE SODIUM) ONGOING [Concomitant]
  6. ASA (ACETYLSALICYLIC ACID) ONGOING [Concomitant]
  7. ORAL BLOOD GLUCOSE LOWERING DRUGS ONGOING [Concomitant]
  8. METFORMIN (METFORMIN) ONGOING [Concomitant]
  9. VITAMIN D3 (COLECALCIFEROL) ONGOING [Concomitant]
  10. ATENOLOL (ATENOLOL) ONGOING [Concomitant]
  11. ESTRATEST (ESTROGENS ESTERIFIED, METHYLTESTOSTERONE) ONGOING [Concomitant]
  12. THYROXINE (LEVOTHYROXINE SODIUM) ONGOING [Concomitant]

REACTIONS (4)
  - PANCREATITIS [None]
  - PANCREATIC DISORDER [None]
  - ABDOMINAL PAIN LOWER [None]
  - WEIGHT DECREASED [None]
